FAERS Safety Report 15767011 (Version 1)
Quarter: 2018Q4

REPORT INFORMATION
  Report Type: Spontaneous
  Country: US (occurrence: US)
  Receive Date: 20181227
  Receipt Date: 20181227
  Transmission Date: 20190205
  Serious: Yes (Hospitalization)
  Sender: FDA-Public Use
  Company Number: US-IBIGEN-2018.05476

PATIENT
  Sex: Male

DRUGS (9)
  1. CEFTRIAXONE. [Concomitant]
     Active Substance: CEFTRIAXONE
  2. POLYMYXIN [Concomitant]
     Active Substance: POLYMYXIN
  3. NAFCILLIN [Suspect]
     Active Substance: NAFCILLIN\NAFCILLIN SODIUM
     Indication: EXTRADURAL ABSCESS
  4. HEPARIN [Concomitant]
     Active Substance: HEPARIN SODIUM
     Indication: THROMBOSIS PROPHYLAXIS
     Route: 058
  5. MORFINE [Concomitant]
     Active Substance: MORPHINE
     Dosage: AS NEEDED
  6. MEROPENEM. [Concomitant]
     Active Substance: MEROPENEM
  7. VANCOMYCIN [Concomitant]
     Active Substance: VANCOMYCIN
  8. METRONIDAZOLE. [Concomitant]
     Active Substance: METRONIDAZOLE
  9. RANITIDINE. [Concomitant]
     Active Substance: RANITIDINE
     Indication: PROPHYLAXIS

REACTIONS (1)
  - Hypokalaemia [Recovering/Resolving]
